FAERS Safety Report 17805667 (Version 3)
Quarter: 2020Q2

REPORT INFORMATION
  Report Type: Spontaneous
  Country: JP (occurrence: JP)
  Receive Date: 20200520
  Receipt Date: 20200623
  Transmission Date: 20200714
  Serious: Yes (Hospitalization, Other)
  Sender: FDA-Public Use
  Company Number: JP-AMGEN-JPNSP2020079393

PATIENT
  Age: 77 Year
  Sex: Female

DRUGS (1)
  1. EVENITY [Suspect]
     Active Substance: ROMOSOZUMAB-AQQG
     Indication: OSTEOPOROSIS
     Dosage: 420 MILLIGRAM
     Route: 058

REACTIONS (5)
  - Dementia [Unknown]
  - Jaw fracture [Not Recovered/Not Resolved]
  - Facial bones fracture [Not Recovered/Not Resolved]
  - Off label use [Unknown]
  - Fall [Not Recovered/Not Resolved]

NARRATIVE: CASE EVENT DATE: 20200513
